FAERS Safety Report 4605910-8 (Version None)
Quarter: 2005Q1

REPORT INFORMATION
  Report Type: 
  Country: None (occurrence: None)
  Receive Date: 20050116
  Receipt Date: 20041022
  Transmission Date: 20050727
  Serious: Yes (Other)
  Sender: FDA-Public Use
  Company Number: PHEH2004US11391

PATIENT
  Age: 90 Year
  Sex: Male

DRUGS (7)
  1. GLEEVEC [Suspect]
     Indication: GASTRIC CANCER
     Dosage: 400 MG, QD; ORAL
     Route: 048
     Dates: start: 20040801
  2. AMIODARONE [Concomitant]
  3. COREG [Concomitant]
  4. LISINOPRIL [Concomitant]
  5. KLOR-CON [Concomitant]
  6. PREVACID [Concomitant]
  7. COLACE (DOCUSATE SODIUM) [Concomitant]

REACTIONS (6)
  - DERMATITIS EXFOLIATIVE [None]
  - EYELID OEDEMA [None]
  - OEDEMA PERIPHERAL [None]
  - PERIORBITAL OEDEMA [None]
  - PRURITUS [None]
  - RASH GENERALISED [None]
